FAERS Safety Report 8743477 (Version 5)
Quarter: 2012Q4

REPORT INFORMATION
  Report Type: Report from Study
  Country: US (occurrence: US)
  Receive Date: 20120824
  Receipt Date: 20121120
  Transmission Date: 20130627
  Serious: Yes (Hospitalization, Other)
  Sender: FDA-Public Use
  Company Number: US-ROCHE-1072927

PATIENT
  Sex: Female
  Weight: 65.83 kg

DRUGS (12)
  1. PEG-INTERFERON ALFA 2A [Suspect]
     Indication: CHRONIC HEPATITIS C
     Route: 058
     Dates: start: 20120430
  2. PEG-INTERFERON ALFA 2A [Suspect]
     Route: 048
  3. TELAPREVIR [Suspect]
     Indication: CHRONIC HEPATITIS C
     Dosage: 375 mg 2 tablets tid
     Route: 048
     Dates: start: 20120430, end: 20120727
  4. RIBAVIRIN [Suspect]
     Indication: CHRONIC HEPATITIS C
     Dosage: 600 mg every AM and 400 mg every PM
     Route: 048
     Dates: start: 20120430
  5. RIBAVIRIN [Suspect]
     Route: 048
  6. LISINOPRIL [Concomitant]
     Indication: HYPERTENSION
     Route: 048
     Dates: start: 20120530
  7. TRAZODONE [Concomitant]
     Indication: INSOMNIA
     Dosage: 50 mg 1/2- 2 tablet QHS as required
     Route: 048
     Dates: start: 20120313
  8. OMEPRAZOLE [Concomitant]
     Indication: GASTROOESOPHAGEAL REFLUX DISEASE
     Route: 048
     Dates: start: 20100831
  9. LASIX [Concomitant]
     Indication: MENIERE^S DISEASE
     Route: 048
     Dates: start: 20091210
  10. VITAMIN D [Concomitant]
     Dosage: 1000 units
     Route: 048
  11. CYMBALTA [Concomitant]
     Indication: DEPRESSION
     Route: 048
     Dates: start: 20110517
  12. ZOFRAN [Concomitant]
     Indication: NAUSEA
     Dosage: qid as required
     Route: 048
     Dates: start: 20120625

REACTIONS (22)
  - Blood potassium decreased [Unknown]
  - Red blood cell count decreased [Unknown]
  - Rash [Unknown]
  - Blood count abnormal [Unknown]
  - Tremor [Unknown]
  - Nausea [Unknown]
  - Dysgeusia [Unknown]
  - Insomnia [Unknown]
  - Fatigue [Not Recovered/Not Resolved]
  - Headache [Unknown]
  - Malaise [Unknown]
  - Haematochezia [Unknown]
  - Haemorrhoids [Unknown]
  - Loss of consciousness [Unknown]
  - Diarrhoea [Recovered/Resolved]
  - Oedema peripheral [Unknown]
  - Nail discolouration [Unknown]
  - Productive cough [Unknown]
  - Influenza [Unknown]
  - Haemorrhoidal haemorrhage [Unknown]
  - Pruritus generalised [Not Recovered/Not Resolved]
  - Hepatitis C [Unknown]
